FAERS Safety Report 25981201 (Version 2)
Quarter: 2025Q4

REPORT INFORMATION
  Report Type: Spontaneous
  Country: EG (occurrence: EG)
  Receive Date: 20251030
  Receipt Date: 20251218
  Transmission Date: 20260117
  Serious: Yes (Life-Threatening, Other)
  Sender: NOVO NORDISK
  Company Number: EG-NOVOPROD-1547546

PATIENT
  Sex: Female

DRUGS (1)
  1. INSULIN HUMAN [Suspect]
     Active Substance: INSULIN HUMAN
     Indication: Product used for unknown indication
     Dosage: 35U (MORNING DOSE)

REACTIONS (3)
  - Diabetic coma [Unknown]
  - Incorrect dose administered by device [Unknown]
  - Device breakage [Unknown]
